FAERS Safety Report 20105392 (Version 1)
Quarter: 2021Q4

REPORT INFORMATION
  Report Type: Spontaneous
  Country: US (occurrence: US)
  Receive Date: 20211124
  Receipt Date: 20211124
  Transmission Date: 20220303
  Serious: No
  Sender: FDA-Public Use
  Company Number: US-009507513-2111USA004032

PATIENT
  Sex: Male

DRUGS (1)
  1. PREVYMIS [Suspect]
     Active Substance: LETERMOVIR
     Dosage: 80 MILLIGRAM, QD
     Route: 048
     Dates: start: 201908

REACTIONS (2)
  - Product dose omission issue [Unknown]
  - No adverse event [Unknown]
